FAERS Safety Report 21481552 (Version 1)
Quarter: 2022Q4

REPORT INFORMATION
  Report Type: Spontaneous
  Country: ES (occurrence: ES)
  Receive Date: 20221020
  Receipt Date: 20221020
  Transmission Date: 20230113
  Serious: Yes (Other)
  Sender: FDA-Public Use
  Company Number: ES-SUN PHARMACEUTICAL INDUSTRIES LTD-2022R1-359419

PATIENT
  Age: 65 Year
  Sex: Male
  Weight: 68 kg

DRUGS (4)
  1. CISPLATIN [Suspect]
     Active Substance: CISPLATIN
     Indication: Mantle cell lymphoma stage III
     Dosage: 50 MILLIGRAM/SQ. METER
     Route: 065
  2. DEXAMETHASONE [Suspect]
     Active Substance: DEXAMETHASONE
     Indication: Mantle cell lymphoma stage III
     Dosage: 20 MILLIGRAM, EVERY 12 HR
     Route: 065
  3. CYTARABINE [Suspect]
     Active Substance: CYTARABINE
     Indication: Mantle cell lymphoma stage III
     Dosage: 2000 MILLIGRAM/SQ. METER, EVERY 12 H
     Route: 065
  4. RITUXIMAB [Suspect]
     Active Substance: RITUXIMAB
     Indication: Mantle cell lymphoma stage III
     Dosage: 375 MILLIGRAM/SQ. METER
     Route: 065

REACTIONS (1)
  - Cerebellar syndrome [Recovered/Resolved]
